FAERS Safety Report 11254501 (Version 2)
Quarter: 2015Q3

REPORT INFORMATION
  Report Type: Spontaneous
  Country: US (occurrence: US)
  Receive Date: 20150709
  Receipt Date: 20150831
  Transmission Date: 20151125
  Serious: No
  Sender: FDA-Public Use
  Company Number: US-PFIZER INC-2015226677

PATIENT
  Age: 65 Year
  Sex: Male
  Weight: 91 kg

DRUGS (2)
  1. TORISEL [Suspect]
     Active Substance: TEMSIROLIMUS
     Dosage: UNK
  2. VOTRIENT [Suspect]
     Active Substance: PAZOPANIB HYDROCHLORIDE
     Indication: RENAL CELL CARCINOMA
     Dosage: 800 MG, DAILY
     Route: 048
     Dates: end: 20150406

REACTIONS (2)
  - Renal cell carcinoma [Not Recovered/Not Resolved]
  - Disease progression [Not Recovered/Not Resolved]

NARRATIVE: CASE EVENT DATE: 20150406
